FAERS Safety Report 8231534-X (Version None)
Quarter: 2012Q1

REPORT INFORMATION
  Report Type: 
  Country: None (occurrence: None)
  Receive Date: 20120323
  Receipt Date: 20120316
  Transmission Date: 20120608
  Serious: Yes (Hospitalization)
  Sender: FDA-Public Use
  Company Number: PHHY2012ES023435

PATIENT
  Age: 39 Year
  Sex: Male

DRUGS (1)
  1. GILENYA [Suspect]
     Indication: MULTIPLE SCLEROSIS
     Dosage: 0.5 MG, QD
     Route: 048
     Dates: start: 20120315

REACTIONS (5)
  - HYPERHIDROSIS [None]
  - MALAISE [None]
  - BLOOD PRESSURE DECREASED [None]
  - PRESYNCOPE [None]
  - DIZZINESS [None]
